FAERS Safety Report 5337666-8 (Version None)
Quarter: 2007Q2

REPORT INFORMATION
  Report Type: 
  Country: None (occurrence: None)
  Receive Date: 20070524
  Receipt Date: 20070514
  Transmission Date: 20071010
  Serious: Yes (Other)
  Sender: FDA-Public Use
  Company Number: TPA2007A00966

PATIENT
  Age: 63 Year
  Sex: Female
  Weight: 83.7 kg

DRUGS (4)
  1. PIOGLITAZONE HCL [Suspect]
     Indication: GLUCOSE TOLERANCE IMPAIRED
     Dosage: 1 IN 1 D, PER ORAL
     Route: 048
     Dates: start: 20041209
  2. ATENOLOL [Concomitant]
  3. PREMARIN [Concomitant]
  4. MULTIVITAMINS (ERGOCALCIFEROL, ASCORBIC ACID, FOLIC ACID, THIAMINE HYD [Concomitant]

REACTIONS (2)
  - ADVERSE EVENT [None]
  - ANGLE CLOSURE GLAUCOMA [None]
